FAERS Safety Report 4472346-2 (Version None)
Quarter: 2004Q4

REPORT INFORMATION
  Report Type: 
  Country: None (occurrence: None)
  Receive Date: 20041007
  Receipt Date: 20040924
  Transmission Date: 20050328
  Serious: Yes (Death, Hospitalization)
  Sender: FDA-Public Use
  Company Number: 2004-BP-05627BP

PATIENT
  Age: 83 Year
  Sex: Female
  Weight: 62.1 kg

DRUGS (4)
  1. MOBIC [Suspect]
     Indication: RHEUMATOID ARTHRITIS
     Dosage: SEE TEXT (7.5 MG, 1 PRN), PO
     Route: 048
     Dates: start: 20020201, end: 20040706
  2. ACETYLSALICYLIC ACID SRT [Concomitant]
  3. PREDNISONE [Concomitant]
  4. METHOTREXATE [Concomitant]

REACTIONS (19)
  - ABDOMINAL PAIN [None]
  - ANAEMIA [None]
  - ASTHENIA [None]
  - BLOOD ALBUMIN DECREASED [None]
  - BLOOD CALCIUM DECREASED [None]
  - BLOOD CHLORIDE INCREASED [None]
  - BLOOD CREATININE INCREASED [None]
  - BLOOD GLUCOSE INCREASED [None]
  - BLOOD PRESSURE DECREASED [None]
  - BLOOD UREA INCREASED [None]
  - DECREASED APPETITE [None]
  - DEPRESSED LEVEL OF CONSCIOUSNESS [None]
  - DUODENAL ULCER HAEMORRHAGE [None]
  - EATING DISORDER [None]
  - INTERSTITIAL LUNG DISEASE [None]
  - LETHARGY [None]
  - PROTEIN TOTAL INCREASED [None]
  - SEPSIS [None]
  - SPLENECTOMY [None]
